FAERS Safety Report 7198700-6 (Version None)
Quarter: 2010Q4

REPORT INFORMATION
  Report Type: 
  Country: None (occurrence: None)
  Receive Date: 20101227
  Receipt Date: 20101217
  Transmission Date: 20110411
  Serious: Yes (Hospitalization)
  Sender: FDA-Public Use
  Company Number: DE-ABBOTT-10P-062-0693274-00

PATIENT
  Age: 72 Year
  Sex: Male

DRUGS (8)
  1. AKINETON [Suspect]
     Indication: ALCOHOL WITHDRAWAL SYNDROME
     Dosage: 5 MILLIGRAM DAILY
     Route: 042
     Dates: start: 20100412, end: 20100412
  2. HALDOL [Suspect]
     Indication: PRODUCT USED FOR UNKNOWN INDICATION
     Dosage: 10 MILLIGRAM DAILY
     Route: 048
     Dates: start: 20100330
  3. HALDOL [Suspect]
     Dosage: 15 MILLIGRAM DAILY
     Route: 048
     Dates: end: 20100401
  4. HALDOL [Suspect]
     Dosage: 5 MILLIGRAM DAILY
     Route: 048
     Dates: start: 20100402
  5. HALDOL [Suspect]
     Dosage: 10 MILLIGRAM DAILY
     Route: 048
     Dates: start: 20100408, end: 20100412
  6. DIAZEPAM [Suspect]
     Indication: PRODUCT USED FOR UNKNOWN INDICATION
     Dosage: 15 MILLIGRAM DAILY
     Route: 048
     Dates: start: 20100330, end: 20100401
  7. DIAZEPAM [Suspect]
     Dosage: 10 MILLIGRAM DAILY
     Dates: start: 20100402
  8. DIAZEPAM [Suspect]
     Dates: start: 20100408, end: 20100412

REACTIONS (1)
  - DEPRESSED LEVEL OF CONSCIOUSNESS [None]
